FAERS Safety Report 17516748 (Version 1)
Quarter: 2020Q1

REPORT INFORMATION
  Report Type: Spontaneous
  Country: US (occurrence: US)
  Receive Date: 20200227
  Receipt Date: 20200227
  Transmission Date: 20200409
  Serious: No
  Sender: FDA-Public Use
  Company Number: None

PATIENT
  Age: 13 Year
  Sex: Female

DRUGS (1)
  1. PHENYTOIN 125MG/ML [Suspect]
     Active Substance: PHENYTOIN
     Indication: LENNOX-GASTAUT SYNDROME
     Route: 048
     Dates: start: 20190528, end: 201908

REACTIONS (2)
  - Tremor [None]
  - Incorrect dose administered [None]

NARRATIVE: CASE EVENT DATE: 20190906
